FAERS Safety Report 22254962 (Version 1)
Quarter: 2023Q2

REPORT INFORMATION
  Report Type: Spontaneous
  Country: US (occurrence: US)
  Receive Date: 20230426
  Receipt Date: 20230426
  Transmission Date: 20230721
  Serious: No
  Sender: FDA-Public Use
  Company Number: US-BAYER-2023A057788

PATIENT

DRUGS (1)
  1. CHILDREN ASTEPRO ALLERGY [Suspect]
     Active Substance: AZELASTINE HYDROCHLORIDE
     Indication: Hypersensitivity

REACTIONS (4)
  - Somnolence [Unknown]
  - Headache [Unknown]
  - Oropharyngeal discomfort [Unknown]
  - Drug ineffective [Unknown]
